FAERS Safety Report 9074933 (Version 4)
Quarter: 2013Q3

REPORT INFORMATION
  Report Type: Report from Study
  Country: US (occurrence: US)
  Receive Date: 20130129
  Receipt Date: 20130823
  Transmission Date: 20140515
  Serious: Yes (Hospitalization, Other)
  Sender: FDA-Public Use
  Company Number: US-ACTELION-A-US2013-77457

PATIENT
  Age: 57 Year
  Sex: Female

DRUGS (4)
  1. VELETRI [Suspect]
     Indication: PULMONARY ARTERIAL HYPERTENSION
     Dosage: 8 NG/KG, UNK
     Route: 042
     Dates: start: 20121206
  2. COUMADIN [Concomitant]
     Dosage: UNK
  3. SILDENAFIL [Concomitant]
  4. LETAIRIS [Concomitant]

REACTIONS (11)
  - Cardiac disorder [Unknown]
  - Blood creatinine abnormal [Unknown]
  - Blood potassium abnormal [Unknown]
  - International normalised ratio decreased [Unknown]
  - Catheterisation cardiac [Unknown]
  - Chest pain [Unknown]
  - Palpitations [Unknown]
  - Dyspnoea [Unknown]
  - Fatigue [Unknown]
  - Post procedural haemorrhage [Unknown]
  - Weight decreased [Unknown]
